FAERS Safety Report 4630934-4 (Version None)
Quarter: 2005Q2

REPORT INFORMATION
  Report Type: 
  Country: None (occurrence: None)
  Receive Date: 20050407
  Receipt Date: 20050407
  Transmission Date: 20051028
  Serious: Yes (Other)
  Sender: FDA-Public Use
  Company Number: None

PATIENT
  Age: 73 Year
  Sex: Male
  Weight: 79.5 kg

DRUGS (2)
  1. AMOXICILLIN AND CLAVULANATE POTASSIUM [Suspect]
     Indication: CELLULITIS
     Dosage: 875 BID, 875 BID, ORAL
     Route: 048
     Dates: start: 20050304, end: 20050307
  2. AMOXICILLIN AND CLAVULANATE POTASSIUM [Suspect]
     Indication: ISCHAEMIA
     Dosage: 875 BID, 875 BID, ORAL
     Route: 048
     Dates: start: 20050304, end: 20050307

REACTIONS (1)
  - RASH [None]
